FAERS Safety Report 6147938-5 (Version None)
Quarter: 2009Q2

REPORT INFORMATION
  Report Type: 
  Country: None (occurrence: None)
  Receive Date: 20090408
  Receipt Date: 20090330
  Transmission Date: 20091009
  Serious: Yes (Hospitalization, Other)
  Sender: FDA-Public Use
  Company Number: PHHY2009FR07394

PATIENT
  Sex: Female
  Weight: 68 kg

DRUGS (2)
  1. GLEEVEC [Suspect]
     Indication: CHONDROMA
     Dosage: 400 MG/DAY
     Dates: start: 20090116, end: 20090219
  2. AERIUS [Concomitant]
     Indication: RASH

REACTIONS (4)
  - AGRANULOCYTOSIS [None]
  - HYPERTHERMIA [None]
  - LUNG DISORDER [None]
  - RASH [None]
